FAERS Safety Report 18966216 (Version 1)
Quarter: 2021Q1

REPORT INFORMATION
  Report Type: Spontaneous
  Country: US (occurrence: US)
  Receive Date: 20210303
  Receipt Date: 20210303
  Transmission Date: 20210420
  Serious: No
  Sender: FDA-Public Use
  Company Number: US-SUNOVION-2021SUN000602

PATIENT
  Sex: Female
  Weight: 80.73 kg

DRUGS (3)
  1. PREDNISONE. [Suspect]
     Active Substance: PREDNISONE
     Indication: FEMOROACETABULAR IMPINGEMENT
     Dosage: UNK (6 DAY TAPER DOSE PACK)
     Route: 065
  2. REXULTI [Concomitant]
     Active Substance: BREXPIPRAZOLE
     Dosage: 4 MG, QD
  3. LATUDA [Suspect]
     Active Substance: LURASIDONE HYDROCHLORIDE
     Indication: SCHIZOAFFECTIVE DISORDER
     Dosage: 20 MG, QD
     Route: 048

REACTIONS (3)
  - Weight increased [Not Recovered/Not Resolved]
  - Therapeutic response unexpected [Unknown]
  - Off label use [Unknown]
